FAERS Safety Report 14064672 (Version 1)
Quarter: 2017Q4

REPORT INFORMATION
  Report Type: Report from Study
  Country: DE (occurrence: DE)
  Receive Date: 20171009
  Receipt Date: 20171009
  Transmission Date: 20180321
  Serious: Yes (Hospitalization)
  Sender: FDA-Public Use
  Company Number: DE-JNJFOC-20171003891

PATIENT
  Age: 70 Year
  Sex: Male

DRUGS (6)
  1. STELARA [Suspect]
     Active Substance: USTEKINUMAB
     Indication: PSORIASIS
     Route: 058
     Dates: start: 20161101
  2. FOLSAN [Concomitant]
     Active Substance: FOLIC ACID
     Route: 048
     Dates: start: 201701
  3. MONO EMBOLEX [Concomitant]
     Active Substance: CERTOPARIN SODIUM
     Route: 065
     Dates: start: 201709
  4. MARCUMAR [Concomitant]
     Active Substance: PHENPROCOUMON
     Route: 065
     Dates: start: 201709
  5. METHOTREXATE. [Concomitant]
     Active Substance: METHOTREXATE
     Indication: PSORIATIC ARTHROPATHY
     Route: 058
     Dates: start: 201501
  6. METHOTREXATE. [Concomitant]
     Active Substance: METHOTREXATE
     Indication: PSORIASIS
     Route: 058
     Dates: start: 201501

REACTIONS (2)
  - Dementia [Unknown]
  - Peripheral arterial occlusive disease [Recovered/Resolved]

NARRATIVE: CASE EVENT DATE: 20170901
